FAERS Safety Report 9145758 (Version 1)
Quarter: 2013Q1

REPORT INFORMATION
  Report Type: Spontaneous
  Country: US (occurrence: None)
  Receive Date: 20130227
  Receipt Date: 20130227
  Transmission Date: 20140127
  Serious: No
  Sender: FDA-Public Use
  Company Number: None

PATIENT
  Age: 36 Year
  Sex: Male

DRUGS (4)
  1. AVONEX PEN 30 MCG BIOGEN [Suspect]
     Indication: MULTIPLE SCLEROSIS
     Dosage: 30 MCGGG  ONCE WEEKLY  IM
     Route: 030
     Dates: start: 20121107, end: 20130226
  2. LISINOPRIL [Concomitant]
  3. GLIPIZIDE [Concomitant]
  4. ZOLOFT [Concomitant]

REACTIONS (2)
  - Weight increased [None]
  - Hypothyroidism [None]
